FAERS Safety Report 7651805-5 (Version None)
Quarter: 2011Q3

REPORT INFORMATION
  Report Type: 
  Country: None (occurrence: None)
  Receive Date: 20110803
  Receipt Date: 20110728
  Transmission Date: 20111222
  Serious: Yes (Death, Life-Threatening, Hospitalization)
  Sender: FDA-Public Use
  Company Number: DE-BRISTOL-MYERS SQUIBB COMPANY-15932288

PATIENT
  Age: 43 Year
  Sex: Female

DRUGS (9)
  1. RITUXIMAB [Suspect]
     Indication: MALIGNANT LYMPHOID NEOPLASM
     Route: 042
     Dates: start: 20090817
  2. ETOPOSIDE [Suspect]
     Indication: MALIGNANT LYMPHOID NEOPLASM
     Route: 065
     Dates: start: 20090616
  3. VINCRISTINE [Suspect]
     Indication: MALIGNANT LYMPHOID NEOPLASM
     Dosage: INTERRUPTED ON 25-AUG-2009
     Route: 065
     Dates: start: 20090617
  4. PROCARBAZINE HYDROCHLORIDE [Suspect]
     Indication: MALIGNANT LYMPHOID NEOPLASM
     Route: 065
     Dates: start: 20090616
  5. NEULASTA [Concomitant]
     Dates: end: 20090916
  6. CYCLOPHOSPHAMIDE [Suspect]
     Indication: MALIGNANT LYMPHOID NEOPLASM
     Route: 065
     Dates: start: 20090616
  7. PREDNISONE [Suspect]
     Indication: MALIGNANT LYMPHOID NEOPLASM
     Route: 065
     Dates: start: 20090616
  8. ADRIAMYCIN PFS [Suspect]
     Indication: MALIGNANT LYMPHOID NEOPLASM
     Route: 065
     Dates: start: 20090616
  9. BLEOMYCIN SULFATE [Suspect]
     Indication: MALIGNANT LYMPHOID NEOPLASM
     Dosage: INTERRUPTED ON 25-AUG-2009
     Route: 065
     Dates: start: 20090617

REACTIONS (7)
  - ANAEMIA [None]
  - TACHYCARDIA [None]
  - STOMATITIS [None]
  - SEPTIC SHOCK [None]
  - DIARRHOEA [None]
  - FEBRILE NEUTROPENIA [None]
  - DYSPNOEA [None]
